FAERS Safety Report 5310348-4 (Version None)
Quarter: 2007Q2

REPORT INFORMATION
  Report Type: 
  Country: None (occurrence: None)
  Receive Date: 20070427
  Receipt Date: 20070417
  Transmission Date: 20071010
  Serious: Yes (Other)
  Sender: FDA-Public Use
  Company Number: US-GENENTECH-237948

PATIENT
  Sex: Female
  Weight: 54.421 kg

DRUGS (3)
  1. HERCEPTIN [Suspect]
     Indication: BREAST CANCER
     Dosage: 330 MG, Q3W
     Route: 042
     Dates: start: 20060621
  2. ARIMIDEX [Concomitant]
     Indication: BREAST CANCER
     Dosage: 1 MG, UNK
     Dates: start: 20060801
  3. CALCIUM D 500 [Concomitant]
     Indication: DRUG USE FOR UNKNOWN INDICATION
     Dosage: 500 MG, UNK
     Dates: start: 20060801

REACTIONS (1)
  - MITRAL VALVE INCOMPETENCE [None]
